FAERS Safety Report 14038089 (Version 2)
Quarter: 2017Q4

REPORT INFORMATION
  Report Type: Spontaneous
  Country: BR (occurrence: BR)
  Receive Date: 20171004
  Receipt Date: 20171113
  Transmission Date: 20180321
  Serious: Yes (Other)
  Sender: FDA-Public Use
  Company Number: BR-ROCHE-2002326

PATIENT
  Age: 88 Year
  Sex: Female
  Weight: 68.5 kg

DRUGS (4)
  1. OLCADIL [Suspect]
     Active Substance: CLOXAZOLAM
     Indication: EMOTIONAL DISTRESS
     Route: 048
  2. OLCADIL [Suspect]
     Active Substance: CLOXAZOLAM
     Indication: TENSION
     Route: 048
  3. LUCENTIS [Suspect]
     Active Substance: RANIBIZUMAB
     Indication: PRODUCT USED FOR UNKNOWN INDICATION
     Route: 065
  4. OLCADIL [Suspect]
     Active Substance: CLOXAZOLAM
     Indication: INSOMNIA
     Dosage: 1 DF, QD (AT NIGHT)
     Route: 048

REACTIONS (4)
  - Retinal disorder [Recovering/Resolving]
  - Abdominal pain upper [Recovering/Resolving]
  - Flatulence [Recovering/Resolving]
  - Sleep disorder [Unknown]

NARRATIVE: CASE EVENT DATE: 20170920
